FAERS Safety Report 8624311-9 (Version None)
Quarter: 2012Q3

REPORT INFORMATION
  Report Type: 
  Country: None (occurrence: None)
  Receive Date: 20120827
  Receipt Date: 20120816
  Transmission Date: 20120928
  Serious: Yes (Other)
  Sender: FDA-Public Use
  Company Number: CA-JNJFOC-20111204516

PATIENT
  Sex: Female
  Weight: 83.01 kg

DRUGS (4)
  1. CORTICOSTEROID [Concomitant]
     Indication: PSORIASIS
  2. STELARA [Suspect]
     Indication: PSORIASIS
     Route: 058
     Dates: start: 20090701, end: 20111015
  3. TEGRETOL [Concomitant]
  4. LYRICA [Concomitant]

REACTIONS (4)
  - POSTERIOR REVERSIBLE ENCEPHALOPATHY SYNDROME [None]
  - PSORIATIC ARTHROPATHY [None]
  - DRUG INEFFECTIVE [None]
  - PSORIASIS [None]
